FAERS Safety Report 7461808-1 (Version None)
Quarter: 2011Q2

REPORT INFORMATION
  Report Type: 
  Country: None (occurrence: None)
  Receive Date: 20110506
  Receipt Date: 20110425
  Transmission Date: 20111010
  Serious: Yes (Other)
  Sender: FDA-Public Use
  Company Number: US-ELI_LILLY_AND_COMPANY-US201104007241

PATIENT
  Sex: Female

DRUGS (6)
  1. LEVEMIR [Concomitant]
     Dosage: UNK
  2. HUMALOG MIX 75/25 [Suspect]
     Dosage: 12 U, EACH MORNING
  3. HUMALOG MIX 75/25 [Suspect]
     Dosage: 16 U, EACH EVENING
     Dates: start: 20010101
  4. HUMALOG MIX 75/25 [Suspect]
     Dosage: 16 U, EACH EVENING
  5. HUMALOG MIX 75/25 [Suspect]
     Indication: DIABETES MELLITUS
     Dosage: 12 U, EACH MORNING
     Dates: start: 20010101
  6. LANTUS [Concomitant]
     Dosage: UNK

REACTIONS (6)
  - DRUG INEFFECTIVE [None]
  - GLYCOSYLATED HAEMOGLOBIN INCREASED [None]
  - BLOOD GLUCOSE INCREASED [None]
  - URINARY TRACT INFECTION [None]
  - THROMBOSIS [None]
  - BLADDER DISORDER [None]
